FAERS Safety Report 6899142-0 (Version None)
Quarter: 2010Q3

REPORT INFORMATION
  Report Type: 
  Country: None (occurrence: None)
  Receive Date: 20100802
  Receipt Date: 20080107
  Transmission Date: 20110219
  Serious: No
  Sender: FDA-Public Use
  Company Number: US-PFIZER INC-2008002358

PATIENT
  Sex: Female
  Weight: 48.5 kg

DRUGS (1)
  1. LYRICA [Suspect]
     Route: 048
     Dates: start: 20071001

REACTIONS (2)
  - FEELING ABNORMAL [None]
  - SOMNOLENCE [None]
